FAERS Safety Report 8906722 (Version 1)
Quarter: 2012Q4

REPORT INFORMATION
  Report Type: 
  Country: GB (occurrence: GB)
  Receive Date: 20121114
  Receipt Date: 20121114
  Transmission Date: 20130627
  Serious: Yes (Other)
  Sender: FDA-Public Use
  Company Number: GB-PFIZER INC-2012280549

PATIENT
  Age: 58 Year
  Sex: Male
  Weight: 68.03 kg

DRUGS (1)
  1. CHAMPIX [Suspect]
     Indication: SMOKING CESSATION THERAPY
     Dosage: 2 mg, 1x/day
     Route: 048
     Dates: start: 20121009

REACTIONS (5)
  - Aggression [Recovering/Resolving]
  - Insomnia [Not Recovered/Not Resolved]
  - Nightmare [Recovering/Resolving]
  - Flat affect [Unknown]
  - Personality change [Unknown]
